FAERS Safety Report 5341560-6 (Version None)
Quarter: 2007Q2

REPORT INFORMATION
  Report Type: 
  Country: None (occurrence: None)
  Receive Date: 20070601
  Receipt Date: 20070527
  Transmission Date: 20071010
  Serious: Yes (Death, Hospitalization)
  Sender: FDA-Public Use
  Company Number: PHBS2007BE07398

PATIENT
  Age: 70 Year
  Sex: Male

DRUGS (2)
  1. NEORAL [Suspect]
     Indication: HEART TRANSPLANT
     Dosage: UNK, UNK
     Route: 065
     Dates: end: 20061023
  2. CERTICAN [Concomitant]
     Indication: HEART TRANSPLANT
     Dosage: 0.75 MG, BID
     Route: 048
     Dates: start: 20060925, end: 20061109

REACTIONS (7)
  - ANURIA [None]
  - BRONCHITIS [None]
  - DIALYSIS [None]
  - GASTROENTERITIS VIRAL [None]
  - INTERSTITIAL LUNG DISEASE [None]
  - NEPHROPATHY TOXIC [None]
  - RENAL FAILURE CHRONIC [None]
